FAERS Safety Report 6785293-8 (Version None)
Quarter: 2010Q2

REPORT INFORMATION
  Report Type: 
  Country: None (occurrence: None)
  Receive Date: 20100623
  Receipt Date: 20100614
  Transmission Date: 20101027
  Serious: Yes (Hospitalization)
  Sender: FDA-Public Use
  Company Number: US-BIOGENIDEC-2010BI007511

PATIENT
  Age: 48 Year
  Sex: Female
  Weight: 62 kg

DRUGS (3)
  1. TYSABRI [Suspect]
     Indication: MULTIPLE SCLEROSIS
     Route: 042
     Dates: start: 20070901
  2. AVONEX [Concomitant]
     Indication: MULTIPLE SCLEROSIS
     Route: 030
     Dates: start: 19960601
  3. BACLOFEN [Concomitant]
     Indication: MUSCLE SPASTICITY

REACTIONS (5)
  - ARTHRALGIA [None]
  - ARTHRITIS [None]
  - CARTILAGE ATROPHY [None]
  - CARTILAGE INJURY [None]
  - POOR PERIPHERAL CIRCULATION [None]
